FAERS Safety Report 7412152-X (Version None)
Quarter: 2011Q2

REPORT INFORMATION
  Report Type: 
  Country: None (occurrence: None)
  Receive Date: 20110405
  Receipt Date: 20110310
  Transmission Date: 20111010
  Serious: Yes (Hospitalization)
  Sender: FDA-Public Use
  Company Number: 54973 RAE#031011EF001

PATIENT
  Age: 8 Month
  Sex: Male
  Weight: 9.0719 kg

DRUGS (1)
  1. HYLAND'S TEETHING TABLETS [Suspect]
     Indication: TEETHING
     Dosage: 2 TABS X4 DAYS

REACTIONS (1)
  - CONVULSION [None]
